FAERS Safety Report 7138070-2 (Version None)
Quarter: 2010Q4

REPORT INFORMATION
  Report Type: 
  Country: None (occurrence: None)
  Receive Date: 20101103
  Receipt Date: 20100819
  Transmission Date: 20110411
  Serious: Yes (Other)
  Sender: FDA-Public Use
  Company Number: US-WYE-H17042210

PATIENT
  Age: 44 Year
  Sex: Female
  Weight: 117.13 kg

DRUGS (19)
  1. EFFEXOR XR [Suspect]
     Indication: DEPRESSION
     Dosage: 225 MG 1X PER 1 DAY, ORAL
     Route: 048
  2. NEURONTIN [Suspect]
     Indication: NEUROPATHY PERIPHERAL
     Dosage: 2400 MG 1X PER 1 DAY, ORAL; 1800 MG 1X PER 1 DAY, ORAL; 300 MG 2X PER 1 DAY,ORAL; ORAL
     Route: 048
     Dates: start: 20090101
  3. NEURONTIN [Suspect]
     Indication: SCIATICA
     Dosage: 2400 MG 1X PER 1 DAY, ORAL; 1800 MG 1X PER 1 DAY, ORAL; 300 MG 2X PER 1 DAY,ORAL; ORAL
     Route: 048
     Dates: start: 20090101
  4. NEURONTIN [Suspect]
     Indication: NEUROPATHY PERIPHERAL
     Dosage: 2400 MG 1X PER 1 DAY, ORAL; 1800 MG 1X PER 1 DAY, ORAL; 300 MG 2X PER 1 DAY,ORAL; ORAL
     Route: 048
     Dates: start: 20100101
  5. NEURONTIN [Suspect]
     Indication: SCIATICA
     Dosage: 2400 MG 1X PER 1 DAY, ORAL; 1800 MG 1X PER 1 DAY, ORAL; 300 MG 2X PER 1 DAY,ORAL; ORAL
     Route: 048
     Dates: start: 20100101
  6. SEROQUEL [Suspect]
  7. ATIVAN [Concomitant]
  8. LITHIUM CARBONATE [Concomitant]
  9. NEXIUM [Concomitant]
  10. SINGULAIR [Concomitant]
  11. ABILIFY [Concomitant]
  12. ACIDOPHILUS, ^ZYMA^ (LACTOBACILLUS ACIDOPHILUS) [Concomitant]
  13. DIFLUCAN [Concomitant]
  14. NYSTATIN [Concomitant]
  15. TRIAMCINOLONE [Concomitant]
  16. FLOVENT [Concomitant]
  17. ATROVENT(IPARATROPIUM BROMIDE) [Concomitant]
  18. LEVOTHYROXINE SODIUM [Concomitant]
  19. BUSPAR [Concomitant]

REACTIONS (10)
  - ANXIETY [None]
  - EMOTIONAL DISORDER [None]
  - FEAR [None]
  - GLUCOSE TOLERANCE IMPAIRED [None]
  - INTENTIONAL SELF-INJURY [None]
  - MALAISE [None]
  - PARANOIA [None]
  - TACHYPHRENIA [None]
  - WEIGHT INCREASED [None]
  - WHITE BLOOD CELL COUNT INCREASED [None]
